FAERS Safety Report 24223467 (Version 3)
Quarter: 2024Q4

REPORT INFORMATION
  Report Type: Spontaneous
  Country: US (occurrence: US)
  Receive Date: 20240819
  Receipt Date: 20241216
  Transmission Date: 20250114
  Serious: No
  Sender: PFIZER
  Company Number: US-PFIZER INC-PV202400024355

PATIENT
  Age: 50 Year
  Sex: Female

DRUGS (3)
  1. EUCRISA [Suspect]
     Active Substance: CRISABOROLE
     Indication: Dermatitis atopic
     Dosage: APPLY TO LEFT MID SKIN BID PRN
     Route: 061
  2. EUCRISA [Suspect]
     Active Substance: CRISABOROLE
     Indication: Pain
  3. EUCRISA [Suspect]
     Active Substance: CRISABOROLE
     Indication: Peripheral swelling

REACTIONS (3)
  - Stress [Unknown]
  - Condition aggravated [Unknown]
  - Gastrointestinal disorder [Unknown]
